FAERS Safety Report 7057737-8 (Version None)
Quarter: 2010Q4

REPORT INFORMATION
  Report Type: 
  Country: None (occurrence: None)
  Receive Date: 20101022
  Receipt Date: 20101012
  Transmission Date: 20110411
  Serious: Yes (Other)
  Sender: FDA-Public Use
  Company Number: CA-JNJFOC-20101004135

PATIENT
  Sex: Male
  Weight: 93.2 kg

DRUGS (6)
  1. REMICADE [Suspect]
     Indication: RHEUMATOID ARTHRITIS
     Route: 042
  2. METHOTREXATE [Concomitant]
     Dosage: 6 TABLETS
     Route: 048
  3. CRESTOR [Concomitant]
  4. FOLIC ACID [Concomitant]
  5. METFORMIN [Concomitant]
  6. BLOOD THINNER [Concomitant]

REACTIONS (1)
  - IMPLANTABLE DEFIBRILLATOR INSERTION [None]
